FAERS Safety Report 24585278 (Version 1)
Quarter: 2024Q4

REPORT INFORMATION
  Report Type: Report from Study
  Country: TN (occurrence: TN)
  Receive Date: 20241106
  Receipt Date: 20241106
  Transmission Date: 20250114
  Serious: Yes (Death, Other)
  Sender: UCB
  Company Number: TN-UCBSA-2024057123

PATIENT

DRUGS (6)
  1. CERTOLIZUMAB PEGOL [Suspect]
     Active Substance: CERTOLIZUMAB PEGOL
     Indication: Rheumatoid arthritis
     Dosage: UNK
  2. INFLIXIMAB [Suspect]
     Active Substance: INFLIXIMAB
     Indication: Rheumatoid arthritis
     Dosage: UNK
  3. ADALIMUMAB [Suspect]
     Active Substance: ADALIMUMAB
     Indication: Rheumatoid arthritis
     Dosage: UNK
  4. ETANERCEPT [Suspect]
     Active Substance: ETANERCEPT
     Indication: Rheumatoid arthritis
     Dosage: UNK
  5. TOCILIZUMAB [Suspect]
     Active Substance: TOCILIZUMAB
     Indication: Rheumatoid arthritis
     Dosage: UNK
  6. RITUXIMAB [Suspect]
     Active Substance: RITUXIMAB
     Indication: Rheumatoid arthritis
     Dosage: UNK

REACTIONS (11)
  - Death [Fatal]
  - Breast cancer [Unknown]
  - Rectal adenocarcinoma [Unknown]
  - Bladder cancer [Unknown]
  - Amoebic dysentery [Unknown]
  - Peritonitis [Unknown]
  - Fungal sepsis [Unknown]
  - Systemic lupus erythematosus [Unknown]
  - Tuberculosis [Unknown]
  - Drug intolerance [Unknown]
  - Drug ineffective [Unknown]
